FAERS Safety Report 23659120 (Version 1)
Quarter: 2024Q1

REPORT INFORMATION
  Report Type: Spontaneous
  Country: US (occurrence: None)
  Receive Date: 20240321
  Receipt Date: 20240321
  Transmission Date: 20240410
  Serious: No
  Sender: FDA-Public Use
  Company Number: None

PATIENT
  Age: 60 Year
  Sex: Female

DRUGS (2)
  1. TALTZ [Suspect]
     Active Substance: IXEKIZUMAB
     Indication: Palmoplantar pustulosis
     Dosage: FREQUENCY : MONTHLY;?
     Route: 058
     Dates: start: 202307
  2. TALTZ [Suspect]
     Active Substance: IXEKIZUMAB
     Indication: Psoriasis

REACTIONS (3)
  - Inappropriate schedule of product administration [None]
  - Nasopharyngitis [None]
  - Hypersensitivity [None]
